FAERS Safety Report 20350009 (Version 1)
Quarter: 2022Q1

REPORT INFORMATION
  Report Type: Spontaneous
  Country: US (occurrence: None)
  Receive Date: 20220119
  Receipt Date: 20220119
  Transmission Date: 20220423
  Serious: Yes (Hospitalization)
  Sender: FDA-Public Use
  Company Number: None

PATIENT
  Age: 79 Year
  Sex: Male

DRUGS (2)
  1. WARFARIN SODIUM [Suspect]
     Active Substance: WARFARIN SODIUM
     Indication: Cardiac ventricular thrombosis
     Dates: start: 20211018, end: 20220110
  2. ASPIRIN [Suspect]
     Active Substance: ASPIRIN
     Dosage: 81MG EVERY DAY PO
     Route: 048
     Dates: start: 200512

REACTIONS (6)
  - Rectal haemorrhage [None]
  - Large intestine polyp [None]
  - Gastritis [None]
  - Diverticulum intestinal haemorrhagic [None]
  - Haemorrhoids [None]
  - Haemodialysis [None]

NARRATIVE: CASE EVENT DATE: 20220110
